FAERS Safety Report 5925505-3 (Version None)
Quarter: 2008Q4

REPORT INFORMATION
  Report Type: 
  Country: None (occurrence: None)
  Receive Date: 20081016
  Receipt Date: 20081001
  Transmission Date: 20090506
  Serious: Yes (Hospitalization)
  Sender: FDA-Public Use
  Company Number: AZAJP200800325

PATIENT
  Age: 66 Year
  Sex: Male

DRUGS (25)
  1. VIDAZA [Suspect]
     Indication: MYELODYSPLASTIC SYNDROME
     Dosage: 75 MG/M2, 7 X DAILY, SUBCUTANEOUS
     Route: 058
     Dates: start: 20080805, end: 20080811
  2. WATER FOR INJECTION (WATER FOR INJECTION) [Concomitant]
  3. VORINCONAZOLE (VORICONAZOLE) [Concomitant]
  4. BROTIZOLAM (BRITIZOLAM) [Concomitant]
  5. LEVOFLOXACIN [Concomitant]
  6. RAMOSETRON HYDROCHLORIDE (RAMOSETRON HYDROCHLORIDE) [Concomitant]
  7. CHEMOTHERAPY ANTIEMETIC PROPHYLAXIS [Concomitant]
  8. HEPARINOID (HEPARINOID) [Concomitant]
  9. HYDROCORTISONE NUTYRATE (HYDROCORTISONE BUTYRATE) [Concomitant]
  10. KETOCONAZOLE [Concomitant]
  11. BECLOMETHASONE DIPROPIONATE [Concomitant]
  12. MAGNESIUM OXIDE (MAGNESIUM OXIDE) [Concomitant]
  13. BISACOYDL (BISACODYL) [Concomitant]
  14. SENNOSIDE (SENNOSIDE A+B) [Concomitant]
  15. FLUROMETHOLONE (FLUOROMETHOLONE) [Concomitant]
  16. ACETAMINOPHEN [Concomitant]
  17. ETIZOLAM (ETIZOLAM) [Concomitant]
  18. POVIDONE IODINE [Concomitant]
  19. FLUNITRAZEPAM (FLUNITRAZEPAM) [Concomitant]
  20. FRADIOMYCIN SULFATE (NEO-CORTEF) [Concomitant]
  21. BETAMETHASONE SODIUM PHOSPHATE (BETAMETHASONE SODIUM) [Concomitant]
  22. TROPICAMIDE [Concomitant]
  23. ESTAZOLAM [Concomitant]
  24. POTASSIUM CHLORIDE [Concomitant]
  25. HYDROXYZINE HCL [Concomitant]

REACTIONS (5)
  - ABSCESS [None]
  - INJECTION SITE ERYTHEMA [None]
  - PNEUMONIA FUNGAL [None]
  - SEPSIS [None]
  - STAPHYLOCOCCAL INFECTION [None]
